FAERS Safety Report 7991578-X (Version None)
Quarter: 2011Q4

REPORT INFORMATION
  Report Type: 
  Country: None (occurrence: None)
  Receive Date: 20111219
  Receipt Date: 20110221
  Transmission Date: 20120403
  Serious: No
  Sender: FDA-Public Use
  Company Number: US-ABBOTT-11P-163-0707235-00

PATIENT
  Sex: Male
  Weight: 97.61 kg

DRUGS (9)
  1. MULTAQ [Concomitant]
     Indication: ATRIAL FIBRILLATION
  2. TERAZOSIN HCL [Concomitant]
     Indication: PROSTATOMEGALY
  3. ADVICOR [Suspect]
     Indication: PROPHYLAXIS
     Dosage: 2 TABLETS EVERY EVENING AFTER DINNER
  4. OMEPRAZOLE [Concomitant]
     Indication: GASTRIC DISORDER
  5. VITAMIN E [Concomitant]
     Indication: PRODUCT USED FOR UNKNOWN INDICATION
  6. VITAMIN D [Concomitant]
     Indication: PRODUCT USED FOR UNKNOWN INDICATION
  7. COUMADIN [Concomitant]
     Indication: ATRIAL FIBRILLATION
  8. LOSARTAN POTASSIUM [Concomitant]
     Indication: BIOPSY BLOOD VESSEL ABNORMAL
  9. VITAMIN B COMPLEX CAP [Concomitant]
     Indication: PRODUCT USED FOR UNKNOWN INDICATION

REACTIONS (2)
  - FLUSHING [None]
  - ERYTHEMA [None]
